FAERS Safety Report 4731676-7 (Version None)
Quarter: 2005Q3

REPORT INFORMATION
  Report Type: 
  Country: None (occurrence: None)
  Receive Date: 20050725
  Receipt Date: 20050302
  Transmission Date: 20060218
  Serious: Yes (Disabling)
  Sender: FDA-Public Use
  Company Number: WAES 0503USA00328

PATIENT
  Age: 46 Year
  Sex: Female

DRUGS (3)
  1. VIOXX [Suspect]
     Indication: ARTHRITIS
     Dosage: 50 MG/DAILY/PO
     Route: 048
     Dates: start: 19990501
  2. MAXZIDE [Concomitant]
  3. NEURONTIN [Concomitant]

REACTIONS (2)
  - ADVERSE EVENT [None]
  - OEDEMA PERIPHERAL [None]
